FAERS Safety Report 7975663-4 (Version None)
Quarter: 2011Q4

REPORT INFORMATION
  Report Type: 
  Country: None (occurrence: None)
  Receive Date: 20111213
  Receipt Date: 20111005
  Transmission Date: 20120403
  Serious: No
  Sender: FDA-Public Use
  Company Number: US-AMGEN-USASP2011051629

PATIENT
  Age: 62 Year
  Sex: Male

DRUGS (2)
  1. ENBREL [Suspect]
     Indication: RHEUMATOID ARTHRITIS
     Dosage: 50 MG, QWK
     Dates: start: 20110916, end: 20111002
  2. METHOTREXATE [Concomitant]
     Dosage: UNK

REACTIONS (5)
  - SWELLING [None]
  - PAIN [None]
  - INFECTION [None]
  - NODULE [None]
  - BLOOD BLISTER [None]
